FAERS Safety Report 25928299 (Version 1)
Quarter: 2025Q4

REPORT INFORMATION
  Report Type: Spontaneous
  Country: AU (occurrence: AU)
  Receive Date: 20251016
  Receipt Date: 20251016
  Transmission Date: 20260118
  Serious: Yes (Other)
  Sender: SAMSUNG BIOEPIS
  Company Number: AU-SAMSUNG BIOEPIS-SB-2025-33634

PATIENT
  Age: 72 Year
  Sex: Male

DRUGS (3)
  1. ADALIMUMAB [Suspect]
     Active Substance: ADALIMUMAB
     Indication: Pityriasis rubra pilaris
  2. ACITRETIN [Suspect]
     Active Substance: ACITRETIN
     Indication: Pityriasis rubra pilaris
  3. METHOTREXATE [Suspect]
     Active Substance: METHOTREXATE
     Indication: Pityriasis rubra pilaris

REACTIONS (3)
  - Cardiac failure congestive [Unknown]
  - Drug ineffective [Unknown]
  - Product use in unapproved indication [Unknown]
